FAERS Safety Report 14102339 (Version 3)
Quarter: 2018Q1

REPORT INFORMATION
  Report Type: Spontaneous
  Country: JP (occurrence: JP)
  Receive Date: 20171018
  Receipt Date: 20180130
  Transmission Date: 20180508
  Serious: Yes (Life-Threatening, Hospitalization, Other)
  Sender: FDA-Public Use
  Company Number: JP-PFIZER INC-2017252020

PATIENT
  Age: 85 Year
  Sex: Male

DRUGS (3)
  1. OPALMON [Concomitant]
     Active Substance: LIMAPROST
     Dosage: UNK
     Dates: start: 20170524
  2. LYRICA [Suspect]
     Active Substance: PREGABALIN
     Indication: BACK PAIN
     Dosage: UNK
     Route: 048
     Dates: start: 20170524, end: 20170606
  3. LOXONIN [Suspect]
     Active Substance: LOXOPROFEN SODIUM
     Indication: BACK PAIN
     Dosage: UNK
     Route: 048
     Dates: start: 20170524, end: 20170606

REACTIONS (13)
  - Condition aggravated [Recovered/Resolved]
  - Aspartate aminotransferase increased [Unknown]
  - Blood lactate dehydrogenase increased [Unknown]
  - Blood bilirubin increased [Unknown]
  - Alanine aminotransferase increased [Unknown]
  - Cardiac failure [Recovered/Resolved]
  - Renal failure [Recovering/Resolving]
  - Blood glucose increased [Unknown]
  - Blood potassium increased [Unknown]
  - Gamma-glutamyltransferase increased [Unknown]
  - Weight increased [Recovered/Resolved]
  - Liver disorder [Recovered/Resolved]
  - Platelet count decreased [Unknown]

NARRATIVE: CASE EVENT DATE: 20170606
